FAERS Safety Report 17043085 (Version 1)
Quarter: 2019Q4

REPORT INFORMATION
  Report Type: Spontaneous
  Country: GB (occurrence: GB)
  Receive Date: 20191118
  Receipt Date: 20191118
  Transmission Date: 20200122
  Serious: Yes (Other)
  Sender: FDA-Public Use
  Company Number: GB-TEVA-2019-GB-1138117

PATIENT
  Age: 86 Year
  Sex: Female
  Weight: 87 kg

DRUGS (17)
  1. ATORVASTATIN [Concomitant]
     Active Substance: ATORVASTATIN
     Dosage: 1 DOSAGE FORMS 1 DAYS
     Dates: start: 20181115
  2. TROSPIUM [Concomitant]
     Active Substance: TROSPIUM
     Dosage: 1 DOSAGE FORMS 1 DAYS
     Dates: start: 20181115
  3. TELMISARTAN. [Concomitant]
     Active Substance: TELMISARTAN
     Dosage: 1 DOSAGE FORMS 1 DAYS
     Dates: start: 20190201
  4. CO-AMILOFRUSE [Concomitant]
     Active Substance: AMILORIDE\FUROSEMIDE
     Dosage: EACH MORNING , 1 DOSAGE FORMS 1 DAYS
     Dates: start: 20190606
  5. ESOMEPRAZOLE. [Concomitant]
     Active Substance: ESOMEPRAZOLE MAGNESIUM
     Dosage: 1 DOSAGE FORMS 1 DAYS
     Dates: start: 20181115
  6. SYSTANE (HYPROMELLOSE 2910 (4000 MPA.S)) [Concomitant]
     Active Substance: HYPROMELLOSE 2910 (4000 MPA.S)
     Dosage: USUALLY QDS
     Dates: start: 20181115
  7. LOPERAMIDE [Concomitant]
     Active Substance: LOPERAMIDE
     Dosage: ONE OR  TWO PER DAY ( CAN INCREASE IN NECESSARY
     Dates: start: 20181115
  8. PRAMIPEXOLE. [Concomitant]
     Active Substance: PRAMIPEXOLE
     Dosage: UP TO 5 TABLETS AT NIGHT
     Dates: start: 20181115
  9. FEBUXOSTAT. [Concomitant]
     Active Substance: FEBUXOSTAT
     Dosage: 1 DOSAGE FORMS 1 DAYS
     Dates: start: 20190819
  10. COLECALCIFEROL [Concomitant]
     Active Substance: CHOLECALCIFEROL
     Dosage: 1 DOSAGE FORMS 1 DAYS
     Dates: start: 20181203
  11. FERROUS FUMARATE [Concomitant]
     Active Substance: FERROUS FUMARATE
     Dosage: 3 DOSAGE FORMS 1 DAYS
     Dates: start: 20190923
  12. CO-AMOXICLAV [Concomitant]
     Active Substance: AMOXICILLIN\CLAVULANATE POTASSIUM
     Dosage: 3 DOSAGE FORMS 1 DAYS
     Dates: start: 20191009, end: 20191016
  13. COCODAMOL [Concomitant]
     Active Substance: ACETAMINOPHEN\CODEINE PHOSPHATE
     Dosage: TAKE 1 OR 2 4 TIMES/DAY
     Dates: start: 20190726, end: 20190825
  14. AMOXICILLIN. [Suspect]
     Active Substance: AMOXICILLIN
     Dosage: 500 MG
     Dates: start: 20191017
  15. PIVMECILLINAM [Concomitant]
     Active Substance: AMDINOCILLIN PIVOXIL
     Dosage: 2 TABS IMMEDIATLEY THEN ONE 3 TIMES DAILY
     Dates: start: 20190814, end: 20190817
  16. MIRABEGRON [Concomitant]
     Active Substance: MIRABEGRON
     Dosage: 1 DOSAGE FORMS 1 DAYS
     Dates: start: 20190402
  17. LOFEPRAMINE [Concomitant]
     Active Substance: LOFEPRAMINE
     Dosage: 2 DOSAGE FORMS 1 DAYS
     Dates: start: 20190501

REACTIONS (1)
  - Swollen tongue [Unknown]

NARRATIVE: CASE EVENT DATE: 20191017
